FAERS Safety Report 8319328-8 (Version None)
Quarter: 2012Q1

REPORT INFORMATION
  Report Type: 
  Country: None (occurrence: None)
  Receive Date: 20120315
  Receipt Date: 20110207
  Transmission Date: 20120608
  Serious: No
  Sender: FDA-Public Use
  Company Number: PHHY2011US03694

PATIENT
  Age: 35 Year
  Sex: Female

DRUGS (2)
  1. ADDERALL 10 [Concomitant]
  2. GILENYA [Suspect]
     Indication: MULTIPLE SCLEROSIS
     Dosage: 0.5 MG, QD, ORAL
     Route: 048
     Dates: start: 20110103

REACTIONS (4)
  - HEADACHE [None]
  - DIARRHOEA [None]
  - FATIGUE [None]
  - SOMNOLENCE [None]
